FAERS Safety Report 14296887 (Version 2)
Quarter: 2018Q1

REPORT INFORMATION
  Report Type: Spontaneous
  Country: PR (occurrence: US)
  Receive Date: 20171218
  Receipt Date: 20180212
  Transmission Date: 20180509
  Serious: Yes (Death, Hospitalization)
  Sender: FDA-Public Use
  Company Number: PR-JNJFOC-20171220271

PATIENT
  Age: 40 Year
  Sex: Male
  Weight: 88.45 kg

DRUGS (2)
  1. XARELTO [Suspect]
     Active Substance: RIVAROXABAN
     Indication: PULMONARY EMBOLISM
     Route: 048
     Dates: start: 20150321, end: 20150812
  2. XARELTO [Suspect]
     Active Substance: RIVAROXABAN
     Indication: DEEP VEIN THROMBOSIS
     Route: 048
     Dates: start: 20150321, end: 20150812

REACTIONS (2)
  - Metastatic malignant melanoma [Fatal]
  - Haemorrhagic stroke [Fatal]

NARRATIVE: CASE EVENT DATE: 201503
